FAERS Safety Report 24030960 (Version 1)
Quarter: 2024Q2

REPORT INFORMATION
  Report Type: Spontaneous
  Country: SE (occurrence: SE)
  Receive Date: 20240628
  Receipt Date: 20240628
  Transmission Date: 20240717
  Serious: Yes (Hospitalization, Disabling)
  Sender: FDA-Public Use
  Company Number: None

PATIENT

DRUGS (5)
  1. DESMOPRESSIN [Suspect]
     Active Substance: DESMOPRESSIN
     Indication: Ill-defined disorder
     Dosage: 15 UG, 1 TIME DAILY
     Route: 042
     Dates: start: 19961113, end: 19961113
  2. ENALAPRIL MALEATE [Concomitant]
     Active Substance: ENALAPRIL MALEATE
     Dosage: UNK PO
     Route: 048
     Dates: start: 199510
  3. HYDROCHLOROTHIAZIDE [Concomitant]
     Active Substance: HYDROCHLOROTHIAZIDE
     Dosage: UNK, 1 TIME DAILY
     Route: 048
     Dates: start: 199510
  4. METOPROLOL SUCCINATE [Concomitant]
     Active Substance: METOPROLOL SUCCINATE
     Dosage: 100 MG PO
     Route: 048
     Dates: start: 1964
  5. ASPIRIN [Concomitant]
     Active Substance: ASPIRIN
     Dosage: 75 MG PO
     Route: 048
     Dates: start: 19961016

REACTIONS (8)
  - Cerebral ischaemia [Unknown]
  - Hemiplegia [Not Recovered/Not Resolved]
  - Aphasia [Unknown]
  - Hypoaesthesia [Unknown]
  - Personality disorder [Unknown]
  - Speech disorder [Unknown]
  - Muscular weakness [Unknown]
  - Muscular weakness [Unknown]

NARRATIVE: CASE EVENT DATE: 19961113
